FAERS Safety Report 4286129-X (Version None)
Quarter: 2004Q1

REPORT INFORMATION
  Report Type: 
  Country: None (occurrence: None)
  Receive Date: 20040203
  Receipt Date: 20040126
  Transmission Date: 20041129
  Serious: Yes (Other)
  Sender: FDA-Public Use
  Company Number: 2004001747

PATIENT
  Age: 59 Year
  Sex: Female

DRUGS (7)
  1. DIFLUCAN [Suspect]
     Indication: ILL-DEFINED DISORDER
     Dosage: 200 MG, ORAL
     Route: 048
     Dates: start: 20031124, end: 20031203
  2. MELPHALAN (MELPHALAN) [Suspect]
     Indication: STEM CELL TRANSPLANT
     Dosage: 140 MG, INTRAVENOUS
     Route: 042
     Dates: start: 20031201, end: 20031202
  3. AMOXICILLIN TRIHYDRATE [Suspect]
     Indication: ILL-DEFINED DISORDER
     Dosage: 750 MG, ORAL
     Route: 048
     Dates: start: 20031124, end: 20031203
  4. LEVOFLOXACIN [Suspect]
     Indication: ILL-DEFINED DISORDER
     Dosage: 300 MG, ORAL
     Route: 048
     Dates: start: 20031124, end: 20031203
  5. FAMOTIDINE [Concomitant]
  6. BACTRIM [Concomitant]
  7. ALENDRONATE SODIUM [Concomitant]

REACTIONS (1)
  - MYOCLONUS [None]
